FAERS Safety Report 4389146-4 (Version None)
Quarter: 2004Q2

REPORT INFORMATION
  Report Type: 
  Country: None (occurrence: None)
  Receive Date: 20040628
  Receipt Date: 20040614
  Transmission Date: 20050107
  Serious: No
  Sender: FDA-Public Use
  Company Number: 2004GB01431

PATIENT
  Age: 61 Year
  Sex: Male
  Weight: 76 kg

DRUGS (4)
  1. FELODIPINE [Suspect]
     Indication: HYPERTENSION
     Dosage: 2.5 MG DAILY PO
     Route: 048
     Dates: start: 20040430, end: 20040519
  2. LORAZEPAM [Concomitant]
  3. ALBUTEROL SULFATE [Concomitant]
  4. LANSOPRAZOLE [Concomitant]

REACTIONS (14)
  - ANXIETY [None]
  - CONDITION AGGRAVATED [None]
  - ERYTHEMA [None]
  - EXTRASYSTOLES [None]
  - FLUSHING [None]
  - INFLUENZA LIKE ILLNESS [None]
  - MUSCLE SPASMS [None]
  - NAUSEA [None]
  - NIGHTMARE [None]
  - OEDEMA MOUTH [None]
  - PALPITATIONS [None]
  - PANIC ATTACK [None]
  - RASH SCALY [None]
  - TREMOR [None]
